FAERS Safety Report 23461675 (Version 1)
Quarter: 2024Q1

REPORT INFORMATION
  Report Type: Spontaneous
  Country: US (occurrence: US)
  Receive Date: 20240131
  Receipt Date: 20240131
  Transmission Date: 20240409
  Serious: No
  Sender: FDA-Public Use
  Company Number: US-BIOVITRUM-2024-US-001392

PATIENT
  Age: 0 Year
  Sex: Male

DRUGS (1)
  1. SYNAGIS [Suspect]
     Active Substance: PALIVIZUMAB
     Indication: Premature baby
     Dosage: EVERY 28 DAYS -30 DAYS
     Route: 030
     Dates: start: 20230405, end: 202401

REACTIONS (3)
  - Nasal congestion [Recovering/Resolving]
  - Cough [Recovered/Resolved]
  - Pyrexia [Recovered/Resolved]
